FAERS Safety Report 4898964-5 (Version None)
Quarter: 2006Q1

REPORT INFORMATION
  Report Type: 
  Country: None (occurrence: None)
  Receive Date: 20060202
  Receipt Date: 20060125
  Transmission Date: 20060701
  Serious: Yes (Life-Threatening, Hospitalization, Disabling, Other)
  Sender: FDA-Public Use
  Company Number: US-JNJFOC-20051202666

PATIENT
  Sex: Female

DRUGS (10)
  1. DURAGESIC-100 [Suspect]
     Route: 062
  2. MORPHINE SULFATE [Concomitant]
     Route: 042
  3. DILAUDID [Concomitant]
     Dosage: MAXIMUM 5 MG THROUGH PATIENT-CONTROLLED ANALGESIA
     Route: 042
  4. LORTAB [Concomitant]
  5. LORTAB [Concomitant]
     Indication: PAIN
     Dosage: 7.5/500 MG 1-2 EVERY 4-6 HRS AS NEEDED
  6. HEPARIN [Concomitant]
     Dosage: 5,000 UNIT/ML
     Route: 058
  7. VANCOMYCIN [Concomitant]
     Dosage: 250 ML/HR OVER 60 MINUTES EVERY 12 HRS
     Route: 042
  8. BENADRYL [Concomitant]
     Dosage: 1-2 EVERY 6-8 HRS
     Route: 048
  9. ONDANSETRON [Concomitant]
     Indication: VOMITING
     Route: 042
  10. ONDANSETRON [Concomitant]
     Indication: NAUSEA
     Route: 042

REACTIONS (5)
  - ACTIVITIES OF DAILY LIVING IMPAIRED [None]
  - COGNITIVE DISORDER [None]
  - MULTI-ORGAN FAILURE [None]
  - PYREXIA [None]
  - SKIN CANDIDA [None]
